FAERS Safety Report 25949791 (Version 1)
Quarter: 2025Q4

REPORT INFORMATION
  Report Type: Spontaneous
  Country: GB (occurrence: GB)
  Receive Date: 20251022
  Receipt Date: 20251022
  Transmission Date: 20260118
  Serious: Yes (Hospitalization)
  Sender: CIPLA
  Company Number: GB-MHRA-MIDB-73d62089-2d13-403b-b535-7a2d3a6f7fb5

PATIENT

DRUGS (10)
  1. RIVAROXABAN [Suspect]
     Active Substance: RIVAROXABAN
     Indication: Product used for unknown indication
     Dosage: 15 MILLIGRAM, QD (TABLETS)
     Route: 065
  2. ACETAMINOPHEN [Concomitant]
     Active Substance: ACETAMINOPHEN
     Indication: Product used for unknown indication
     Dosage: 500 MILLIGRAMS, QID(ONE TO BE TAKEN EVERY 4-6 HOURS UP TO FOUR TIMES A DAY )
     Route: 065
  3. PREGABALIN [Concomitant]
     Active Substance: PREGABALIN
     Indication: Product used for unknown indication
     Dosage: 50 MILLIGRAM, BID (ONE TO BE TAKEN TWICE A DAY ) (EVERY 12 HOURS)
     Route: 065
  4. THIAMINE [Concomitant]
     Active Substance: THIAMINE
     Indication: Product used for unknown indication
     Dosage: 100 MILLIGRAM, TID (ONE TO BE TAKEN THREE TIMES A DAY) (EVERY 8 HOURS)
     Route: 065
  5. OMEPRAZOLE [Concomitant]
     Active Substance: OMEPRAZOLE
     Indication: Product used for unknown indication
     Dosage: 20 MILLIGRAM, QD (ONE TO BE TAKEN EACH DAY )
     Route: 065
  6. ACIDEX ADVANCE [Concomitant]
     Indication: Dyspepsia
     Dosage: 5 MILLILITER, BID (EVERY 12 HOURS) ANISEED TWO 5 MLS SPOONFUL^S
     Route: 065
  7. HYLO CARE [Concomitant]
     Indication: Product used for unknown indication
     Dosage: 1 DOSAGE FORM, QID (EVERY 6 HOURS) (PRESERVATIVE FREE USE ONE DROP FOUR TIMES A DAY)
     Route: 065
  8. MIRABEGRON [Concomitant]
     Active Substance: MIRABEGRON
     Indication: Product used for unknown indication
     Dosage: 25 MILLIGRAM, QD
     Route: 065
  9. ALLOPURINOL [Concomitant]
     Active Substance: ALLOPURINOL
     Indication: Product used for unknown indication
     Dosage: 100 MILLIGRAM, QD (ONE TO BE TAKEN DAILY)
     Route: 065
  10. VENTOLIN [Concomitant]
     Active Substance: ALBUTEROL SULFATE
     Indication: Product used for unknown indication
     Dosage: 1 MILLIGRAM (STRENGTH:100 MICROGRAMS / DOSE)
     Route: 065

REACTIONS (1)
  - Haemoglobin decreased [Unknown]
